FAERS Safety Report 25378617 (Version 1)
Quarter: 2025Q2

REPORT INFORMATION
  Report Type: Spontaneous
  Country: ES (occurrence: ES)
  Receive Date: 20250530
  Receipt Date: 20250530
  Transmission Date: 20250717
  Serious: Yes (Other)
  Sender: AMGEN
  Company Number: ES-AMGEN-ESPSP2025102390

PATIENT
  Age: 13 Year
  Sex: Male

DRUGS (9)
  1. FILGRASTIM [Suspect]
     Active Substance: FILGRASTIM
     Indication: Peripheral blood stem cell apheresis
     Dosage: 5 MICROGRAM/KILOGRAM, Q12H (FOR 4 DAYS)
     Route: 058
  2. PLERIXAFOR [Suspect]
     Active Substance: PLERIXAFOR
     Indication: Product used for unknown indication
     Route: 065
  3. METHYLPREDNISOLONE [Concomitant]
     Active Substance: METHYLPREDNISOLONE
     Indication: Product used for unknown indication
     Route: 040
  4. ETOPOSIDE [Concomitant]
     Active Substance: ETOPOSIDE
     Route: 040
  5. CISPLATIN [Concomitant]
     Active Substance: CISPLATIN
     Route: 040
  6. IFOSFAMIDE [Concomitant]
     Active Substance: IFOSFAMIDE
     Route: 040
  7. ACYCLOVIR [Concomitant]
     Active Substance: ACYCLOVIR
  8. FLUCONAZOLE [Concomitant]
     Active Substance: FLUCONAZOLE
  9. SULFAMETHOXAZOLE\TRIMETHOPRIM [Concomitant]
     Active Substance: SULFAMETHOXAZOLE\TRIMETHOPRIM

REACTIONS (4)
  - Escherichia sepsis [Unknown]
  - Mucosal inflammation [Unknown]
  - Vomiting [Unknown]
  - Drug effect less than expected [Unknown]
